FAERS Safety Report 16066625 (Version 1)
Quarter: 2019Q1

REPORT INFORMATION
  Report Type: Spontaneous
  Country: US (occurrence: US)
  Receive Date: 20190212
  Receipt Date: 20190212
  Transmission Date: 20190418
  Serious: Yes (Hospitalization)
  Sender: FDA-Public Use
  Company Number: None

PATIENT
  Age: 5 Year
  Sex: Male

DRUGS (1)
  1. VIGABATRIN POWDER [Suspect]
     Active Substance: VIGABATRIN
     Indication: EPILEPSY
     Dosage: 450MG/9 ML
     Route: 065
     Dates: start: 20171203

REACTIONS (1)
  - Seizure [None]

NARRATIVE: CASE EVENT DATE: 20190118
